FAERS Safety Report 6942018-0 (Version None)
Quarter: 2010Q3

REPORT INFORMATION
  Report Type: 
  Country: None (occurrence: None)
  Receive Date: 20100826
  Receipt Date: 20100823
  Transmission Date: 20110219
  Serious: Yes (Life-Threatening, Hospitalization, Other)
  Sender: FDA-Public Use
  Company Number: PHFR2010GB02018

PATIENT
  Age: 41 Year
  Sex: Male

DRUGS (3)
  1. TEGRETOL [Suspect]
     Indication: NEURALGIA
     Dosage: 300 MG, QD
     Route: 048
     Dates: start: 20090330, end: 20090422
  2. BACLOFEN [Concomitant]
     Dosage: 30 MG, UNK
     Route: 048
  3. DIAZEPAM [Concomitant]
     Dosage: 6 MG, UNK
     Route: 048

REACTIONS (3)
  - DEEP VEIN THROMBOSIS [None]
  - IMMOBILE [None]
  - PULMONARY EMBOLISM [None]
